FAERS Safety Report 9283517 (Version 5)
Quarter: 2015Q4

REPORT INFORMATION
  Report Type: Spontaneous
  Country: NO (occurrence: NO)
  Receive Date: 20130510
  Receipt Date: 20151016
  Transmission Date: 20160305
  Serious: Yes (Hospitalization, Other)
  Sender: FDA-Public Use
  Company Number: NO-TEVA-404406USA

PATIENT
  Age: 56 Year
  Sex: Female

DRUGS (5)
  1. BENDAMUSTIN [Suspect]
     Active Substance: BENDAMUSTINE
     Indication: CHRONIC LYMPHOCYTIC LEUKAEMIA
     Route: 042
     Dates: start: 20130114, end: 20130212
  2. BENDAMUSTIN [Suspect]
     Active Substance: BENDAMUSTINE
     Route: 042
     Dates: start: 20130115
  3. BENDAMUSTIN [Suspect]
     Active Substance: BENDAMUSTINE
     Route: 042
     Dates: start: 20130113, end: 20130212
  4. BENDAMUSTIN [Suspect]
     Active Substance: BENDAMUSTINE
     Route: 042
     Dates: start: 20130212
  5. IBUX [Concomitant]
     Active Substance: IBUPROFEN
     Indication: PAIN
     Dosage: 400 MILLIGRAM DAILY;
     Route: 065

REACTIONS (11)
  - Acute hepatic failure [Unknown]
  - Syncope [Unknown]
  - Upper limb fracture [Unknown]
  - Nausea [Unknown]
  - Dizziness [Unknown]
  - Hepatitis [Recovered/Resolved with Sequelae]
  - Hepatitis acute [Recovered/Resolved with Sequelae]
  - Chills [Unknown]
  - Pyrexia [Unknown]
  - Headache [Unknown]
  - Diarrhoea [Unknown]

NARRATIVE: CASE EVENT DATE: 201302
